FAERS Safety Report 12176332 (Version 1)
Quarter: 2016Q1

REPORT INFORMATION
  Report Type: Spontaneous
  Country: US (occurrence: US)
  Receive Date: 20160314
  Receipt Date: 20160314
  Transmission Date: 20160526
  Serious: Yes (Hospitalization)
  Sender: FDA-Public Use
  Company Number: US-INCYTE CORPORATION-2016IN000755

PATIENT
  Age: 74 Year
  Sex: Male
  Weight: 66.5 kg

DRUGS (7)
  1. NEXIUM [Concomitant]
     Active Substance: ESOMEPRAZOLE MAGNESIUM
     Indication: PRODUCT USED FOR UNKNOWN INDICATION
  2. JAKAFI [Suspect]
     Active Substance: RUXOLITINIB
     Dosage: 20 MG 5 DAYS PER WK AND 10 MG FOR 2 DAYS PER WK
     Route: 048
  3. COUMADIN [Suspect]
     Active Substance: WARFARIN SODIUM
     Indication: DEEP VEIN THROMBOSIS
     Dosage: 7.5 MG ALTERNATING WITH 5 MG
     Dates: end: 20160103
  4. HYDROXYZINE [Concomitant]
     Active Substance: HYDROXYZINE\HYDROXYZINE HYDROCHLORIDE
     Indication: PRODUCT USED FOR UNKNOWN INDICATION
  5. JAKAFI [Suspect]
     Active Substance: RUXOLITINIB
     Indication: MYELOPROLIFERATIVE NEOPLASM
     Dosage: 10 MG, BID ON MON, WED, FRI; 10 MG QD TUES, THURS, SAT, SUN
     Route: 048
     Dates: start: 2012, end: 201601
  6. AMBIEN [Suspect]
     Active Substance: ZOLPIDEM TARTRATE
     Indication: PRODUCT USED FOR UNKNOWN INDICATION
  7. LOMOTIL [Concomitant]
     Active Substance: ATROPINE SULFATE\DIPHENOXYLATE HYDROCHLORIDE
     Indication: PRODUCT USED FOR UNKNOWN INDICATION

REACTIONS (18)
  - Fall [Recovering/Resolving]
  - Epistaxis [Recovered/Resolved]
  - Thrombocytopenia [Recovering/Resolving]
  - Gastrointestinal haemorrhage [Unknown]
  - Hypoxia [Unknown]
  - Anaemia [Unknown]
  - Cholecystitis acute [Recovering/Resolving]
  - Pneumonia [Unknown]
  - Off label use [Unknown]
  - Hepatomegaly [Recovering/Resolving]
  - Clostridium difficile infection [Unknown]
  - Weight decreased [Unknown]
  - Decreased appetite [Unknown]
  - Hepatic enzyme increased [Recovering/Resolving]
  - Splenomegaly [Recovering/Resolving]
  - Myelofibrosis [Unknown]
  - Jaundice [Unknown]
  - Drug ineffective [Unknown]

NARRATIVE: CASE EVENT DATE: 201512
